FAERS Safety Report 5915578-6 (Version None)
Quarter: 2008Q4

REPORT INFORMATION
  Report Type: 
  Country: None (occurrence: None)
  Receive Date: 20081010
  Receipt Date: 20080902
  Transmission Date: 20090506
  Serious: No
  Sender: FDA-Public Use
  Company Number: A0745391A

PATIENT
  Age: 60 Year
  Sex: Female

DRUGS (7)
  1. TYKERB [Suspect]
     Indication: BREAST CANCER
     Dosage: 250MG FIVE TIMES PER DAY
     Route: 048
     Dates: start: 20080730
  2. XELODA [Concomitant]
  3. GABAPENTIN [Concomitant]
  4. POTASSIUM CHLORIDE [Concomitant]
  5. DOXAZOSIN MESYLATE [Concomitant]
  6. COZAAR [Concomitant]
  7. METOPROLOL TARTRATE [Concomitant]

REACTIONS (1)
  - DIARRHOEA [None]
